FAERS Safety Report 15256582 (Version 1)
Quarter: 2018Q3

REPORT INFORMATION
  Report Type: Spontaneous
  Country: US (occurrence: US)
  Receive Date: 20180808
  Receipt Date: 20180808
  Transmission Date: 20181010
  Serious: Yes (Death)
  Sender: FDA-Public Use
  Company Number: US-PFIZER INC-2018315417

PATIENT
  Sex: Male

DRUGS (1)
  1. SIROLIMUS. [Suspect]
     Active Substance: SIROLIMUS
     Indication: GENE MUTATION
     Dosage: 0.2 MG/M2, UNK (LOW?DOSE)

REACTIONS (5)
  - Drug ineffective for unapproved indication [Fatal]
  - Brain injury [Fatal]
  - Multiple organ dysfunction syndrome [Fatal]
  - Coagulopathy [Fatal]
  - Sepsis [Fatal]
